FAERS Safety Report 6084768-7 (Version None)
Quarter: 2009Q1

REPORT INFORMATION
  Report Type: 
  Country: None (occurrence: None)
  Receive Date: 20090217
  Receipt Date: 20090202
  Transmission Date: 20090719
  Serious: Yes (Death, Hospitalization)
  Sender: FDA-Public Use
  Company Number: 2008000996

PATIENT
  Age: 60 Year
  Sex: Female
  Weight: 48 kg

DRUGS (5)
  1. ERLOTINIB (ERLOTINIB HCL) (TABLET) (ERLOTINIB HCL) [Suspect]
     Indication: NON-SMALL CELL LUNG CANCER
     Dosage: (150 MG, QD), ORAL : (150 MG, QD), ORAL
     Route: 048
     Dates: start: 20080218, end: 20081114
  2. ERLOTINIB (ERLOTINIB HCL) (TABLET) (ERLOTINIB HCL) [Suspect]
     Indication: NON-SMALL CELL LUNG CANCER
     Dosage: (150 MG, QD), ORAL : (150 MG, QD), ORAL
     Route: 048
     Dates: start: 20080417, end: 20081114
  3. FERROMIA (FERROUS CITRATE) [Concomitant]
  4. OMEPRAZOLE [Concomitant]
  5. FENTANYL [Concomitant]

REACTIONS (4)
  - GASTROENTERITIS [None]
  - INTESTINAL OBSTRUCTION [None]
  - LUNG ADENOCARCINOMA [None]
  - MALIGNANT NEOPLASM PROGRESSION [None]
